FAERS Safety Report 24796607 (Version 1)
Quarter: 2025Q1

REPORT INFORMATION
  Report Type: Report from Study
  Country: DE (occurrence: DE)
  Receive Date: 20250101
  Receipt Date: 20250101
  Transmission Date: 20250409
  Serious: Yes (Hospitalization, Other)
  Sender: ALEXION PHARMACEUTICALS
  Company Number: DE-BRISTOL-MYERS SQUIBB COMPANY-BMS-2021-005220

PATIENT
  Age: 58 Year

DRUGS (16)
  1. PULMICORT TURBUHALER [Suspect]
     Active Substance: BUDESONIDE
     Indication: Colitis
  2. PULMICORT TURBUHALER [Suspect]
     Active Substance: BUDESONIDE
  3. PULMICORT TURBUHALER [Suspect]
     Active Substance: BUDESONIDE
  4. PULMICORT TURBUHALER [Suspect]
     Active Substance: BUDESONIDE
  5. NIVOLUMAB [Suspect]
     Active Substance: NIVOLUMAB
     Indication: Malignant melanoma
     Dosage: 240 MILLIGRAM, Q2WK
  6. NIVOLUMAB [Suspect]
     Active Substance: NIVOLUMAB
     Dosage: 240 MILLIGRAM, Q2WK
     Route: 042
  7. NIVOLUMAB [Suspect]
     Active Substance: NIVOLUMAB
     Dosage: 240 MILLIGRAM, Q2WK
  8. NIVOLUMAB [Suspect]
     Active Substance: NIVOLUMAB
     Dosage: 240 MILLIGRAM, Q2WK
     Route: 042
  9. PREDNISOLONE [Suspect]
     Active Substance: PREDNISOLONE
     Indication: Colitis
  10. PREDNISOLONE [Suspect]
     Active Substance: PREDNISOLONE
     Route: 048
  11. PREDNISOLONE [Suspect]
     Active Substance: PREDNISOLONE
  12. PREDNISOLONE [Suspect]
     Active Substance: PREDNISOLONE
     Route: 048
  13. DEXAMETHASONE [Suspect]
     Active Substance: DEXAMETHASONE
     Indication: Colitis
  14. DEXAMETHASONE [Suspect]
     Active Substance: DEXAMETHASONE
     Route: 042
  15. DEXAMETHASONE [Suspect]
     Active Substance: DEXAMETHASONE
  16. DEXAMETHASONE [Suspect]
     Active Substance: DEXAMETHASONE
     Route: 042

REACTIONS (2)
  - Cataract [Recovered/Resolved]
  - Ulcerative keratitis [Recovered/Resolved]
